FAERS Safety Report 13375169 (Version 1)
Quarter: 2017Q1

REPORT INFORMATION
  Report Type: Spontaneous
  Country: US (occurrence: US)
  Receive Date: 20170327
  Receipt Date: 20170327
  Transmission Date: 20170429
  Serious: Yes (Hospitalization)
  Sender: FDA-Public Use
  Company Number: US-LUNDBECK-DKLU2028268

PATIENT
  Sex: Female

DRUGS (2)
  1. NORTHERA [Suspect]
     Active Substance: DROXIDOPA
     Indication: AUTONOMIC FAILURE SYNDROME
     Dosage: SCHEDULE C
     Route: 048
     Dates: start: 201610
  2. NORTHERA [Suspect]
     Active Substance: DROXIDOPA
     Indication: NEUROPATHY PERIPHERAL
     Route: 065

REACTIONS (6)
  - Visual impairment [Unknown]
  - Dizziness [Unknown]
  - Hypotension [Unknown]
  - Dyspnoea [Unknown]
  - Hip surgery [Unknown]
  - Chest discomfort [Unknown]
